FAERS Safety Report 9833114 (Version 1)
Quarter: 2014Q1

REPORT INFORMATION
  Report Type: Spontaneous
  Country: US (occurrence: US)
  Receive Date: 20140121
  Receipt Date: 20140121
  Transmission Date: 20141002
  Serious: Yes (Death)
  Sender: FDA-Public Use
  Company Number: US-ACTELION-A-NJ2014-93678

PATIENT
  Age: 75 Year
  Sex: Male

DRUGS (2)
  1. TRACLEER [Suspect]
     Indication: COR PULMONALE CHRONIC
     Route: 048
  2. ADCIRCA [Concomitant]

REACTIONS (1)
  - Death [Fatal]
